FAERS Safety Report 7461718-X (Version None)
Quarter: 2011Q2

REPORT INFORMATION
  Report Type: 
  Country: None (occurrence: None)
  Receive Date: 20110506
  Receipt Date: 20110418
  Transmission Date: 20111010
  Serious: Yes (Hospitalization, Other)
  Sender: FDA-Public Use
  Company Number: US-BAYER-201027428NA

PATIENT
  Age: 17 Year
  Sex: Female
  Weight: 69.5 kg

DRUGS (6)
  1. YASMIN [Suspect]
     Indication: PRODUCT USED FOR UNKNOWN INDICATION
     Route: 048
     Dates: start: 20040101, end: 20040901
  2. PREDNISONE [Concomitant]
     Route: 048
  3. FEOSOL [Concomitant]
     Dosage: 500 MG, UNK
     Route: 048
  4. PENTASA [Concomitant]
     Dosage: 250 MG, UNK
     Route: 048
  5. MERCAPTOPURINE [Concomitant]
     Dosage: 75 MG, QD
     Route: 048
     Dates: start: 20040706
  6. LORTAB [Concomitant]
     Route: 048

REACTIONS (4)
  - PULMONARY EMBOLISM [None]
  - EXERCISE TOLERANCE DECREASED [None]
  - PULMONARY VENO-OCCLUSIVE DISEASE [None]
  - PALPITATIONS [None]
